FAERS Safety Report 8624388-0 (Version None)
Quarter: 2012Q3

REPORT INFORMATION
  Report Type: 
  Country: None (occurrence: None)
  Receive Date: 20120827
  Receipt Date: 20120822
  Transmission Date: 20120928
  Serious: Yes (Hospitalization, Other)
  Sender: FDA-Public Use
  Company Number: IT-PFIZER INC-2012207155

PATIENT
  Age: 84 Year
  Sex: Male

DRUGS (6)
  1. LANTUS [Concomitant]
     Dosage: UNK
  2. APIDRA [Concomitant]
     Dosage: UNK
  3. LUVION [Suspect]
     Indication: HYPERTENSION
     Dosage: 50 MG, ALTERNATE DAY
     Route: 048
     Dates: start: 20110516, end: 20120515
  4. SIMVASTATIN [Concomitant]
     Dosage: UNK
  5. RAMIPRIL [Suspect]
     Indication: HYPERTENSION
     Dosage: 5 MG, DAILY
     Route: 048
     Dates: start: 20110516, end: 20120515
  6. ACETYLSALICYLIC ACID [Concomitant]
     Dosage: UNK

REACTIONS (4)
  - RENAL FAILURE [None]
  - HYPERTROPHIC CARDIOMYOPATHY [None]
  - NODAL ARRHYTHMIA [None]
  - HYPERKALAEMIA [None]
